FAERS Safety Report 9632995 (Version 1)
Quarter: 2013Q4

REPORT INFORMATION
  Report Type: Report from Study
  Country: US (occurrence: US)
  Receive Date: 20131018
  Receipt Date: 20131018
  Transmission Date: 20140711
  Serious: Yes (Hospitalization)
  Sender: FDA-Public Use
  Company Number: US-ABBVIE-13P-163-1156575-00

PATIENT
  Age: 67 Year
  Sex: Female
  Weight: 80.81 kg

DRUGS (16)
  1. HUMIRA [Suspect]
     Indication: PSORIATIC ARTHROPATHY
     Dates: start: 2012, end: 201303
  2. HUMIRA [Suspect]
     Indication: PSORIASIS
     Dates: start: 201303, end: 201310
  3. HUMIRA [Suspect]
     Route: 058
     Dates: start: 201310
  4. AMITRIPTYLINE [Concomitant]
     Indication: GASTRIC DISORDER
  5. CHOLECALCIFEROL [Concomitant]
     Indication: VITAMIN D DEFICIENCY
  6. ESCITALOPRAM OXALATE [Concomitant]
     Indication: ANXIETY
  7. METFORMIN [Concomitant]
     Indication: DIABETES MELLITUS
  8. METOLAZONE [Concomitant]
     Indication: DIURETIC THERAPY
  9. OMEPRAZOLE [Concomitant]
     Indication: GASTROOESOPHAGEAL REFLUX DISEASE
  10. OXYCODONE [Concomitant]
     Indication: PAIN
  11. POTASSIUM CHLORIDE [Concomitant]
     Indication: MUSCLE SPASMS
  12. URISOL [Concomitant]
     Indication: BILIARY CIRRHOSIS PRIMARY
  13. FUROSEMIDE [Concomitant]
     Indication: PRODUCT USED FOR UNKNOWN INDICATION
  14. TEMAZEPAM [Concomitant]
     Indication: PRODUCT USED FOR UNKNOWN INDICATION
  15. SULFASALAZINE [Concomitant]
     Indication: PRODUCT USED FOR UNKNOWN INDICATION
  16. DESONIDE [Concomitant]
     Indication: PRODUCT USED FOR UNKNOWN INDICATION

REACTIONS (12)
  - Concussion [Recovering/Resolving]
  - Cerebral haemorrhage [Recovered/Resolved]
  - Brain oedema [Recovered/Resolved]
  - Contusion [Recovering/Resolving]
  - Upper limb fracture [Recovering/Resolving]
  - Fall [Recovering/Resolving]
  - Laceration [Recovering/Resolving]
  - Balance disorder [Recovered/Resolved]
  - Diarrhoea [Unknown]
  - Head injury [Recovered/Resolved]
  - Pain [Not Recovered/Not Resolved]
  - Psoriasis [Not Recovered/Not Resolved]
